FAERS Safety Report 14740655 (Version 3)
Quarter: 2018Q2

REPORT INFORMATION
  Report Type: Spontaneous
  Country: HR (occurrence: HR)
  Receive Date: 20180410
  Receipt Date: 20180511
  Transmission Date: 20180711
  Serious: Yes (Death, Life-Threatening, Hospitalization, Other)
  Sender: FDA-Public Use
  Company Number: HR-VALIDUS PHARMACEUTICALS LLC-HR-2018VAL000625

PATIENT
  Age: 73 Year
  Sex: Female

DRUGS (14)
  1. CIPROFLOXACIN                      /00697202/ [Suspect]
     Active Substance: CIPROFLOXACIN HYDROCHLORIDE
     Indication: PRODUCT USED FOR UNKNOWN INDICATION
     Dosage: UNK
     Route: 065
  2. ACETYLSALICYLIC ACID [Concomitant]
     Active Substance: ASPIRIN
     Indication: CHRONIC KIDNEY DISEASE
     Dosage: UNK
  3. FUROSEMIDE. [Suspect]
     Active Substance: FUROSEMIDE
     Indication: CHRONIC KIDNEY DISEASE
     Dosage: 1000 MG, QD
     Route: 048
  4. GENTAMICIN                         /00047102/ [Suspect]
     Active Substance: GENTAMICIN
     Indication: PRODUCT USED FOR UNKNOWN INDICATION
     Dosage: UNK
     Route: 061
  5. LISINOPRIL. [Concomitant]
     Active Substance: LISINOPRIL
     Indication: HYPERTENSION
  6. CEFUROXIME AXETIL. [Suspect]
     Active Substance: CEFUROXIME AXETIL
     Indication: URINARY TRACT INFECTION
     Dosage: 500 MG, QD
     Route: 048
  7. FISH OIL [Suspect]
     Active Substance: FISH OIL
     Indication: TOXIC EPIDERMAL NECROLYSIS
     Dosage: UNK
     Route: 065
  8. FUROSEMIDE. [Suspect]
     Active Substance: FUROSEMIDE
     Indication: HYPERTENSION
     Dosage: UNK
     Route: 065
  9. CEFUROXIME AXETIL. [Suspect]
     Active Substance: CEFUROXIME AXETIL
     Indication: ESCHERICHIA INFECTION
  10. METHYLPREDNISOLONE. [Suspect]
     Active Substance: METHYLPREDNISOLONE
     Indication: STEROID THERAPY
     Dosage: UNK
     Route: 065
  11. CORTICOSTEROID NOS [Suspect]
     Active Substance: CORTICOSTEROID NOS
     Indication: TOXIC EPIDERMAL NECROLYSIS
     Dosage: UNK
     Route: 065
  12. LORATADINE. [Suspect]
     Active Substance: LORATADINE
     Indication: PRODUCT USED FOR UNKNOWN INDICATION
     Dosage: UNK
     Route: 065
  13. CALCIUM CARBONATE. [Concomitant]
     Active Substance: CALCIUM CARBONATE
     Indication: PRODUCT USED FOR UNKNOWN INDICATION
     Dosage: UNK
  14. LISINOPRIL. [Concomitant]
     Active Substance: LISINOPRIL
     Indication: CHRONIC KIDNEY DISEASE
     Dosage: UNK

REACTIONS (31)
  - Drug level increased [Unknown]
  - Blister [Unknown]
  - Rash [Unknown]
  - Death [Fatal]
  - Keratitis [Unknown]
  - Granulocytopenia [Fatal]
  - Nikolsky^s sign [Unknown]
  - Malaise [Unknown]
  - Drug interaction [Fatal]
  - Pyrexia [Unknown]
  - Sepsis [Fatal]
  - Protein total decreased [Unknown]
  - Epidermal necrosis [Unknown]
  - Toxic epidermal necrolysis [Fatal]
  - Skin lesion [Unknown]
  - Hypertension [Unknown]
  - Staphylococcal infection [Fatal]
  - Mouth ulceration [Fatal]
  - Multiple organ dysfunction syndrome [Fatal]
  - Skin disorder [Unknown]
  - Skin exfoliation [Unknown]
  - Leukopenia [Unknown]
  - Gastrointestinal haemorrhage [Fatal]
  - Staphylococcal sepsis [Unknown]
  - Arthralgia [Unknown]
  - Escherichia infection [Unknown]
  - Body temperature increased [Unknown]
  - Oesophagitis haemorrhagic [Unknown]
  - Skin oedema [Unknown]
  - Pruritus [Unknown]
  - Toxic epidermal necrolysis [Unknown]
